FAERS Safety Report 7372532-8 (Version None)
Quarter: 2011Q1

REPORT INFORMATION
  Report Type: 
  Country: None (occurrence: None)
  Receive Date: 20110324
  Receipt Date: 20110315
  Transmission Date: 20110831
  Serious: Yes (Other)
  Sender: FDA-Public Use
  Company Number: US-ASTRAZENECA-2011SE14446

PATIENT
  Age: 42 Year
  Sex: Male
  Weight: 154.2 kg

DRUGS (2)
  1. METFORMIN HCL [Concomitant]
     Indication: BLOOD GLUCOSE
  2. NEXIUM [Suspect]
     Indication: GASTROOESOPHAGEAL REFLUX DISEASE
     Route: 048
     Dates: start: 20010101

REACTIONS (3)
  - FOOT FRACTURE [None]
  - OSTEOPOROSIS [None]
  - LOWER LIMB FRACTURE [None]
